FAERS Safety Report 17886174 (Version 1)
Quarter: 2020Q2

REPORT INFORMATION
  Report Type: Spontaneous
  Country: FR (occurrence: FR)
  Receive Date: 20200611
  Receipt Date: 20200611
  Transmission Date: 20200714
  Serious: Yes (Hospitalization)
  Sender: FDA-Public Use
  Company Number: NVSC2020FR162083

PATIENT
  Age: 15 Year
  Sex: Male

DRUGS (3)
  1. LAMPRENE [Suspect]
     Active Substance: CLOFAZIMINE
     Indication: LEPROSY
     Route: 048
     Dates: start: 20200304, end: 20200314
  2. RIFAMPICINE [Suspect]
     Active Substance: RIFAMPIN
     Indication: LEPROSY
     Route: 048
     Dates: start: 20200304, end: 20200314
  3. DISULONE [Suspect]
     Active Substance: DAPSONE\FERROUS OXALATE
     Indication: LEPROSY
     Route: 048
     Dates: start: 20200304, end: 20200314

REACTIONS (1)
  - Haemolytic anaemia [Recovering/Resolving]

NARRATIVE: CASE EVENT DATE: 20200313
